FAERS Safety Report 23557939 (Version 3)
Quarter: 2024Q1

REPORT INFORMATION
  Report Type: Spontaneous
  Country: GB (occurrence: GB)
  Receive Date: 20240223
  Receipt Date: 20240321
  Transmission Date: 20240410
  Serious: Yes (Hospitalization, Other)
  Sender: FDA-Public Use
  Company Number: GB-ABBVIE-5640849

PATIENT
  Age: 72 Year
  Sex: Female

DRUGS (10)
  1. AZACITIDINE [Suspect]
     Active Substance: AZACITIDINE
     Indication: Acute myeloid leukaemia
     Dosage: DAILY ON DAYS 1,2,3,4, 5, 8,9
     Route: 050
     Dates: start: 20240108, end: 20240116
  2. AZACITIDINE [Suspect]
     Active Substance: AZACITIDINE
     Dosage: DAILY ON DAYS 1,2,3,4, 5, 8,9
     Route: 050
     Dates: start: 20240226
  3. VENETOCLAX [Suspect]
     Active Substance: VENETOCLAX
     Indication: Acute myeloid leukaemia
     Route: 050
     Dates: start: 20240108, end: 20240204
  4. VENETOCLAX [Suspect]
     Active Substance: VENETOCLAX
     Route: 050
     Dates: start: 20240226
  5. ACYCLOVIR SODIUM [Concomitant]
     Active Substance: ACYCLOVIR SODIUM
     Indication: Prophylaxis
     Route: 050
     Dates: start: 20240108
  6. POSACONAZOLE [Concomitant]
     Active Substance: POSACONAZOLE
     Indication: Product used for unknown indication
     Route: 050
     Dates: start: 20240112
  7. SULFAMETHOXAZOLE\TRIMETHOPRIM [Concomitant]
     Active Substance: SULFAMETHOXAZOLE\TRIMETHOPRIM
     Indication: Prophylaxis
     Dosage: 480 MG, BD, MON WED, FRIDAY
     Route: 050
     Dates: start: 20240108
  8. ASPIRIN [Concomitant]
     Active Substance: ASPIRIN
     Indication: Transient ischaemic attack
     Route: 050
     Dates: start: 20060606
  9. AMLODIPINE [Concomitant]
     Active Substance: AMLODIPINE BESYLATE
     Indication: Hypertension
     Route: 050
     Dates: start: 20150626
  10. ATORVASTATIN [Concomitant]
     Active Substance: ATORVASTATIN
     Indication: Prophylaxis
     Route: 050
     Dates: start: 20201130

REACTIONS (13)
  - Pancreatitis acute [Recovered/Resolved with Sequelae]
  - Neutropenia [Recovered/Resolved]
  - Acute myeloid leukaemia [Recovered/Resolved]
  - Hepatic steatosis [Unknown]
  - Abdominal pain [Unknown]
  - Gastric volvulus [Unknown]
  - Abdominal rigidity [Unknown]
  - Hepatic cyst [Unknown]
  - Abdominal tenderness [Unknown]
  - Aortic aneurysm [Unknown]
  - Amylase increased [Unknown]
  - Renal disorder [Unknown]
  - Gastric dilatation [Unknown]

NARRATIVE: CASE EVENT DATE: 20240101
